FAERS Safety Report 15056622 (Version 1)
Quarter: 2018Q2

REPORT INFORMATION
  Report Type: Spontaneous
  Country: US (occurrence: US)
  Receive Date: 20180623
  Receipt Date: 20180623
  Transmission Date: 20180711
  Serious: No
  Sender: FDA-Public Use
  Company Number: US-JNJFOC-20180612379

PATIENT
  Age: 27 Year
  Sex: Female
  Weight: 54.43 kg

DRUGS (3)
  1. VITAMIN D [Concomitant]
     Active Substance: CHOLECALCIFEROL
     Indication: VITAMIN D DEFICIENCY
     Route: 065
  2. PROZAC [Concomitant]
     Active Substance: FLUOXETINE HYDROCHLORIDE
     Indication: ANXIETY
     Route: 065
  3. REMICADE [Suspect]
     Active Substance: INFLIXIMAB
     Indication: CROHN^S DISEASE
     Route: 042
     Dates: start: 201711

REACTIONS (5)
  - Off label use [Unknown]
  - Product use issue [Unknown]
  - Insomnia [Unknown]
  - Pruritus [Unknown]
  - Sunburn [Unknown]

NARRATIVE: CASE EVENT DATE: 201711
